FAERS Safety Report 24910382 (Version 1)
Quarter: 2025Q1

REPORT INFORMATION
  Report Type: Spontaneous
  Country: US (occurrence: None)
  Receive Date: 20250130
  Receipt Date: 20250130
  Transmission Date: 20250409
  Serious: No
  Sender: FDA-CTU
  Company Number: None

PATIENT
  Age: 72 Year
  Sex: Female

DRUGS (2)
  1. CAPECITABINE [Suspect]
     Active Substance: CAPECITABINE
  2. GEMZAR [Suspect]
     Active Substance: GEMCITABINE HYDROCHLORIDE

REACTIONS (9)
  - Palmar-plantar erythrodysaesthesia syndrome [None]
  - Stomatitis [None]
  - Stomatitis [None]
  - Abdominal pain [None]
  - Enteritis [None]
  - Dehydration [None]
  - Hypokalaemia [None]
  - Pyrexia [None]
  - Clostridium difficile colitis [None]

NARRATIVE: CASE EVENT DATE: 20250130
